FAERS Safety Report 4969234-1 (Version None)
Quarter: 2006Q2

REPORT INFORMATION
  Report Type: 
  Country: None (occurrence: None)
  Receive Date: 20060405
  Receipt Date: 20060323
  Transmission Date: 20061013
  Serious: Yes (Other)
  Sender: FDA-Public Use
  Company Number: 2006041531

PATIENT
  Age: 81 Year
  Sex: Female
  Weight: 49.8957 kg

DRUGS (12)
  1. DETROL LA [Suspect]
     Indication: HYPERTONIC BLADDER
     Dosage: 4 MG, (4 MG, 1 IN 1 D), ORAL
     Route: 048
     Dates: start: 20050101
  2. PREDNISONE TAB [Suspect]
     Indication: TEMPORAL ARTERITIS
     Dosage: 120 MG (120 MG, 1 IN 1 D)
     Dates: start: 20050801
  3. NORVASC [Concomitant]
  4. CLONIDINE [Concomitant]
  5. ATENOLOL [Concomitant]
  6. PAXIL [Concomitant]
  7. ADVAIR DISKUS 100/50 [Concomitant]
  8. MONTELUKAST SODIUM (MONTELUKAST SODIUM) [Concomitant]
  9. ASPIRIN [Concomitant]
  10. CALCIUM (CALCIUM) [Concomitant]
  11. VITAMIN B (VITAMIN B) [Concomitant]
  12. FOLIC ACID [Concomitant]

REACTIONS (9)
  - ABDOMINAL DISTENSION [None]
  - ABDOMINAL PAIN UPPER [None]
  - ACCIDENT [None]
  - ANGIOPLASTY [None]
  - ARTHRITIS [None]
  - BODY DYSMORPHIC DISORDER [None]
  - CUSHINGOID [None]
  - DIABETES MELLITUS [None]
  - WEIGHT INCREASED [None]
